FAERS Safety Report 11643957 (Version 1)
Quarter: 2015Q4

REPORT INFORMATION
  Report Type: Spontaneous
  Country: US (occurrence: US)
  Receive Date: 20151020
  Receipt Date: 20151020
  Transmission Date: 20160304
  Serious: Yes (Hospitalization, Other)
  Sender: FDA-Public Use
  Company Number: US-009507513-1107USA00789

PATIENT
  Sex: Female
  Weight: 72.58 kg

DRUGS (7)
  1. FOSAMAX [Suspect]
     Active Substance: ALENDRONATE SODIUM
     Indication: OSTEOPOROSIS
     Dosage: 70 MG, QW
     Route: 048
     Dates: start: 200109, end: 20060805
  2. FOSAMAX PLUS D [Suspect]
     Active Substance: ALENDRONATE SODIUM\CHOLECALCIFEROL
     Indication: OSTEOPOROSIS
     Route: 048
     Dates: start: 200210, end: 200210
  3. FOSAMAX [Concomitant]
     Active Substance: ALENDRONATE SODIUM
     Indication: OSTEOPOROSIS
     Dosage: 70 MG, QW
     Route: 048
     Dates: start: 20081023, end: 20100128
  4. FOSAMAX PLUS D [Suspect]
     Active Substance: ALENDRONATE SODIUM\CHOLECALCIFEROL
     Indication: OSTEOPENIA
     Dosage: 70MG/2800
     Route: 048
     Dates: start: 20060805
  5. FOSAMAX [Suspect]
     Active Substance: ALENDRONATE SODIUM
     Indication: OSTEOPENIA
     Dosage: 70 MG, QW
     Route: 048
     Dates: start: 20060905, end: 20081023
  6. CENTRUM (MINERALS (UNSPECIFIED) (+) VITAMINS (UNSPECIFIED)) [Concomitant]
     Dosage: UNK UNK, QD
  7. FOSAMAX [Concomitant]
     Active Substance: ALENDRONATE SODIUM
     Indication: OSTEOPENIA

REACTIONS (28)
  - Femur fracture [Unknown]
  - Fall [Unknown]
  - Foot deformity [Unknown]
  - Low turnover osteopathy [Unknown]
  - Low density lipoprotein increased [Unknown]
  - Sciatica [Unknown]
  - Intervertebral disc protrusion [Unknown]
  - Anaemia [Unknown]
  - Musculoskeletal pain [Unknown]
  - Depression [Unknown]
  - Myalgia [Unknown]
  - Foot fracture [Recovering/Resolving]
  - Contusion [Recovering/Resolving]
  - Osteoarthritis [Unknown]
  - Hyperlipidaemia [Unknown]
  - Urethral caruncle [Unknown]
  - Anxiety [Unknown]
  - Fall [Unknown]
  - Osteoarthritis [Unknown]
  - Intervertebral disc degeneration [Unknown]
  - Rheumatoid factor positive [Unknown]
  - Urinary tract infection [Unknown]
  - Synovial cyst [Recovered/Resolved]
  - Fatigue [Unknown]
  - Essential hypertension [Unknown]
  - Dyspnoea [Unknown]
  - Atrophic vulvovaginitis [Unknown]
  - Synovial cyst [Unknown]

NARRATIVE: CASE EVENT DATE: 20020212
